FAERS Safety Report 6232137-9 (Version None)
Quarter: 2009Q2

REPORT INFORMATION
  Report Type: 
  Country: None (occurrence: None)
  Receive Date: 20090617
  Receipt Date: 20090608
  Transmission Date: 20091009
  Serious: Yes (Other)
  Sender: FDA-Public Use
  Company Number: AU-ROCHE-637469

PATIENT
  Age: 37 Year
  Sex: Female

DRUGS (7)
  1. FLUMAZENIL [Suspect]
     Indication: DRUG USE FOR UNKNOWN INDICATION
     Dosage: ADMINISTERED AS AN INFUSION. STOPPED AFTER ONE DAY DUE TO A BLOCKAGE IN THE DELIVERY LINE.
     Route: 065
  2. FLUMAZENIL [Suspect]
     Dosage: RECOMMENCED ON DAY 2 BUT STOPPED ON DAY 4 OF THE INFUSION.
     Route: 065
  3. DEXAMPHETAMINE [Concomitant]
  4. PAROXETINE HCL [Concomitant]
  5. QUETIAPINE FUMARATE [Concomitant]
  6. DIAZEPAM [Concomitant]
  7. ALPRAZOLAM [Concomitant]

REACTIONS (1)
  - VENOUS THROMBOSIS [None]
